FAERS Safety Report 12803326 (Version 3)
Quarter: 2020Q3

REPORT INFORMATION
  Report Type: Report from Study
  Country: IL (occurrence: IL)
  Receive Date: 20161003
  Receipt Date: 20170127
  Transmission Date: 20201104
  Serious: Yes (Hospitalization)
  Sender: FDA-Public Use
  Company Number: IL-JNJFOC-20160929914

PATIENT
  Age: 77 Year
  Sex: Male

DRUGS (2)
  1. IBRUTINIB [Suspect]
     Active Substance: IBRUTINIB
     Indication: CHRONIC LYMPHOCYTIC LEUKAEMIA
     Route: 048
     Dates: start: 20130804
  2. IBRUTINIB [Suspect]
     Active Substance: IBRUTINIB
     Route: 048

REACTIONS (1)
  - Heat stroke [Recovered/Resolved]

NARRATIVE: CASE EVENT DATE: 20160921
